FAERS Safety Report 5087182-6 (Version None)
Quarter: 2006Q3

REPORT INFORMATION
  Report Type: 
  Country: None (occurrence: None)
  Receive Date: 20060821
  Receipt Date: 20060808
  Transmission Date: 20061208
  Serious: Yes (Hospitalization)
  Sender: FDA-Public Use
  Company Number: 2006093062

PATIENT
  Age: 55 Year
  Sex: Female
  Weight: 54 kg

DRUGS (4)
  1. SULFASALAZINE [Suspect]
     Indication: RHEUMATOID ARTHRITIS
     Dosage: 500 MG (EVERY DAY), ORAL
     Route: 048
     Dates: end: 20060215
  2. ZANTAC [Concomitant]
  3. INDOMETHACIN [Concomitant]
  4. INFREE S [Concomitant]
     Dates: end: 20060215

REACTIONS (3)
  - CULTURE URINE POSITIVE [None]
  - PNEUMOCOCCAL INFECTION [None]
  - PNEUMONIA PRIMARY ATYPICAL [None]
